FAERS Safety Report 9499669 (Version 1)
Quarter: 2013Q3

REPORT INFORMATION
  Report Type: Report from Study
  Country: US (occurrence: US)
  Receive Date: 20130905
  Receipt Date: 20130905
  Transmission Date: 20140515
  Serious: Yes (Other)
  Sender: FDA-Public Use
  Company Number: US-CELGENEUS-163-22393-13083568

PATIENT
  Sex: 0

DRUGS (2)
  1. ISTODAX [Suspect]
     Indication: THYROID CANCER
     Dosage: 9 MILLIGRAM/SQ. METER
     Route: 065
  2. ISTODAX [Suspect]
     Dosage: 7 MILLIGRAM/SQ. METER
     Route: 065

REACTIONS (1)
  - Atrial fibrillation [Unknown]
